FAERS Safety Report 15103259 (Version 1)
Quarter: 2018Q3

REPORT INFORMATION
  Report Type: Spontaneous
  Country: US (occurrence: US)
  Receive Date: 20180703
  Receipt Date: 20180703
  Transmission Date: 20181010
  Serious: No
  Sender: FDA-Public Use
  Company Number: US-PFIZER INC-2018266682

PATIENT
  Age: 41 Year
  Sex: Female
  Weight: 51.71 kg

DRUGS (1)
  1. LYRICA [Suspect]
     Active Substance: PREGABALIN
     Indication: FIBROMYALGIA
     Dosage: 50 MG, 2X/DAY
     Route: 048

REACTIONS (6)
  - Limb injury [Unknown]
  - Burning sensation [Unknown]
  - Skin disorder [Unknown]
  - Pruritus [Unknown]
  - Movement disorder [Unknown]
  - Skin discolouration [Unknown]
